FAERS Safety Report 5136462-4 (Version None)
Quarter: 2006Q4

REPORT INFORMATION
  Report Type: 
  Country: None (occurrence: None)
  Receive Date: 20061027
  Receipt Date: 20060815
  Transmission Date: 20070319
  Serious: No
  Sender: FDA-Public Use
  Company Number: US-BRISTOL-MYERS SQUIBB COMPANY-13475926

PATIENT
  Age: 43 Year
  Sex: Male
  Weight: 75 kg

DRUGS (1)
  1. KENALOG-40 [Suspect]
     Indication: PAIN MANAGEMENT
     Dosage: KENALOG-40 INJ, 80MG ON 14-MAR-2006, 28-MAR-2006, 11-APR-2006.
     Route: 024
     Dates: start: 20060314

REACTIONS (4)
  - HYPERHIDROSIS [None]
  - IMPAIRED HEALING [None]
  - INCREASED TENDENCY TO BRUISE [None]
  - SKIN ATROPHY [None]
